FAERS Safety Report 12356896 (Version 1)
Quarter: 2016Q2

REPORT INFORMATION
  Report Type: Spontaneous
  Country: US (occurrence: US)
  Receive Date: 20160511
  Receipt Date: 20160511
  Transmission Date: 20160815
  Serious: Yes (Other)
  Sender: FDA-Public Use
  Company Number: US-PFIZER INC-2016248983

PATIENT
  Age: 22 Year
  Sex: Male
  Weight: 91 kg

DRUGS (1)
  1. ADVIL [Suspect]
     Active Substance: IBUPROFEN
     Indication: PYREXIA
     Dosage: UNK (6 LIQUI-GELS IN A 24-HOUR PERIOD)
     Route: 048
     Dates: start: 20160504, end: 20160505

REACTIONS (2)
  - Gastric haemorrhage [Unknown]
  - Pain [Unknown]

NARRATIVE: CASE EVENT DATE: 201605
